FAERS Safety Report 5713829-4 (Version None)
Quarter: 2008Q2

REPORT INFORMATION
  Report Type: 
  Country: None (occurrence: None)
  Receive Date: 20080421
  Receipt Date: 20080410
  Transmission Date: 20081010
  Serious: Yes (Other)
  Sender: FDA-Public Use
  Company Number: 2008AP000861

PATIENT
  Age: 48 Year
  Sex: Female
  Weight: 64.8644 kg

DRUGS (3)
  1. BALSALAZIDE DISODIUM [Suspect]
     Indication: COLITIS ULCERATIVE
     Dosage: 3 CAP;BID;PO
     Route: 048
     Dates: start: 20080325, end: 20080327
  2. COLAZAL [Suspect]
  3. BALSALAZIDE DISODIUM [Concomitant]

REACTIONS (4)
  - DERMATITIS ALLERGIC [None]
  - EYE SWELLING [None]
  - PRURITUS GENERALISED [None]
  - URTICARIA [None]
